FAERS Safety Report 8464947-1 (Version None)
Quarter: 2012Q2

REPORT INFORMATION
  Report Type: 
  Country: None (occurrence: None)
  Receive Date: 20120626
  Receipt Date: 20120620
  Transmission Date: 20120825
  Serious: Yes (Hospitalization, Other)
  Sender: FDA-Public Use
  Company Number: US-PFIZER INC-2012096052

PATIENT
  Sex: Female

DRUGS (9)
  1. VICODIN [Concomitant]
     Indication: PAIN
     Dosage: UNK
     Dates: start: 20000101
  2. CHANTIX [Suspect]
     Dosage: 0.5MG OR 1MG, UNK
     Dates: start: 20070701, end: 20070901
  3. XANAX [Concomitant]
     Indication: ANXIETY
     Dosage: UNK
     Dates: start: 20020101
  4. CHANTIX [Suspect]
     Indication: SMOKING CESSATION THERAPY
     Dosage: 0.5MG OR 1MG, UNK
     Dates: start: 20070401, end: 20070501
  5. ZOCOR [Concomitant]
     Indication: BLOOD CHOLESTEROL
     Dosage: UNK
     Dates: start: 19990101
  6. PLAVIX [Concomitant]
     Indication: CARDIAC DISORDER
     Dosage: UNK
     Dates: start: 20030101
  7. CYMBALTA [Concomitant]
     Indication: DEPRESSION
     Dosage: UNK
     Dates: start: 19990101
  8. AMBIEN [Concomitant]
     Indication: INSOMNIA
     Dosage: UNK
     Dates: start: 20000101
  9. LISINOPRIL [Concomitant]
     Indication: CARDIAC DISORDER
     Dosage: UNK
     Dates: start: 20030101

REACTIONS (7)
  - MOOD SWINGS [None]
  - SUICIDAL IDEATION [None]
  - ANXIETY [None]
  - ABNORMAL BEHAVIOUR [None]
  - IRRITABILITY [None]
  - DEPRESSION [None]
  - HOSTILITY [None]
